FAERS Safety Report 7100134-7 (Version None)
Quarter: 2010Q4

REPORT INFORMATION
  Report Type: 
  Country: None (occurrence: None)
  Receive Date: 20101112
  Receipt Date: 20100416
  Transmission Date: 20110411
  Serious: No
  Sender: FDA-Public Use
  Company Number: A0855476A

PATIENT
  Age: 66 Year
  Sex: Male

DRUGS (10)
  1. CARVEDILOL [Suspect]
     Dosage: 12.5MG TWICE PER DAY
     Route: 048
     Dates: start: 20080101, end: 20080101
  2. VITAMIN D [Concomitant]
  3. ASPIRIN [Concomitant]
  4. LISINOPRIL [Concomitant]
  5. LIPITOR [Concomitant]
  6. AVODART [Concomitant]
  7. FUROSEMIDE [Concomitant]
  8. ZETIA [Concomitant]
  9. PLAVIX [Concomitant]
  10. DIETARY SUPPLEMENT [Concomitant]

REACTIONS (1)
  - MUSCLE SPASMS [None]
